FAERS Safety Report 6321676-8 (Version None)
Quarter: 2009Q3

REPORT INFORMATION
  Report Type: 
  Country: None (occurrence: None)
  Receive Date: 20090821
  Receipt Date: 20090821
  Transmission Date: 20100115
  Serious: Yes (Other)
  Sender: FDA-Public Use
  Company Number: None

PATIENT
  Age: 65 Year
  Sex: Male
  Weight: 74.8435 kg

DRUGS (1)
  1. INDOMETHACIN 50MG CAP [Suspect]
     Indication: GOUT
     Dosage: 4 X DAILY - 50 MG TAPER AS DIRECTED
     Dates: start: 20090702, end: 20090708

REACTIONS (4)
  - ABDOMINAL PAIN UPPER [None]
  - HEADACHE [None]
  - NAUSEA [None]
  - TINNITUS [None]
